FAERS Safety Report 8398988-X (Version None)
Quarter: 2012Q2

REPORT INFORMATION
  Report Type: 
  Country: None (occurrence: None)
  Receive Date: 20120531
  Receipt Date: 20120524
  Transmission Date: 20120825
  Serious: Yes (Life-Threatening)
  Sender: FDA-Public Use
  Company Number: NL-ROCHE-1073063

PATIENT
  Sex: Male
  Weight: 82 kg

DRUGS (9)
  1. MABTHERA [Suspect]
     Dosage: LAST DOSE PRIOR TO THE SAE ON 28/APR/2012
     Route: 042
     Dates: start: 20120414
  2. DOXORUBICIN HCL [Suspect]
     Indication: MALIGNANT LYMPHOID NEOPLASM
     Dosage: LAST DOSE PRIOR TO THE SAE ON 28/APR/2012
     Route: 042
     Dates: start: 20120410
  3. HYDROCHLOROTHIAZIDE [Concomitant]
     Dosage: LAST DOSE PRIOR TO THE SAE ON 01/MAY/2012
     Route: 048
  4. VINCRISTINE [Suspect]
     Indication: MALIGNANT LYMPHOID NEOPLASM
     Dosage: LAST DOSE PRIOR TO THE SAE ON 28/APR/2012
     Route: 042
     Dates: start: 20120410
  5. MABTHERA [Suspect]
     Indication: MALIGNANT LYMPHOID NEOPLASM
     Dosage: LAST DOSE PRIOR TO THE SAE ON 28/APR/2012
     Route: 042
     Dates: start: 20120410
  6. OMEPRAZOLE [Concomitant]
     Dosage: LAST DOSE PRIOR TO THE SAE ON 01/MAY/2012
     Route: 048
  7. PREDNISONE TAB [Suspect]
     Indication: MALIGNANT LYMPHOID NEOPLASM
     Dosage: LAST DOSE PRIOR TO THE SAE ON 28/APR/2012
     Route: 048
     Dates: start: 20120410
  8. CYCLOPHOSPHAMIDE [Suspect]
     Indication: MALIGNANT LYMPHOID NEOPLASM
     Dosage: LAST DOSE PRIOR TO THE SAE ON 28/APR/2012
     Route: 042
     Dates: start: 20120410
  9. ENALAPRIL MALEATE [Concomitant]
     Dosage: LAST DOSE PRIOR TO THE SAE ON 01/MAY/2012
     Route: 048

REACTIONS (1)
  - PULMONARY EMBOLISM [None]
